FAERS Safety Report 19217306 (Version 1)
Quarter: 2021Q2

REPORT INFORMATION
  Report Type: Spontaneous
  Country: IN (occurrence: IN)
  Receive Date: 20210505
  Receipt Date: 20210505
  Transmission Date: 20210717
  Serious: Yes (Hospitalization)
  Sender: FDA-Public Use
  Company Number: IN-MYLANLABS-2021M1026411

PATIENT
  Age: 63 Year
  Sex: Female

DRUGS (4)
  1. DEXONA                             /00016001/ [Suspect]
     Active Substance: DEXAMETHASONE
     Indication: BREAST CANCER STAGE III
     Dosage: 12 MILLIGRAM
     Route: 065
     Dates: end: 20190812
  2. PALONOSETRON. [Concomitant]
     Active Substance: PALONOSETRON HYDROCHLORIDE
     Indication: BREAST CANCER STAGE III
     Dosage: 0.25 MILLIGRAM
     Route: 065
     Dates: end: 20120812
  3. DOXORUBICIN [Suspect]
     Active Substance: DOXORUBICIN
     Indication: BREAST CANCER STAGE III
     Dosage: 96 MILLIGRAM
     Route: 065
     Dates: end: 20190812
  4. CYCLOPHOSPHAMIDE. [Suspect]
     Active Substance: CYCLOPHOSPHAMIDE
     Indication: BREAST CANCER STAGE III
     Dosage: 960 MILLIGRAM
     Route: 065
     Dates: end: 20190812

REACTIONS (2)
  - Drug interaction [Recovered/Resolved]
  - Cardiotoxicity [Recovered/Resolved]
